FAERS Safety Report 22587704 (Version 1)
Quarter: 2023Q2

REPORT INFORMATION
  Report Type: Spontaneous
  Country: ES (occurrence: ES)
  Receive Date: 20230612
  Receipt Date: 20230612
  Transmission Date: 20230722
  Serious: Yes (Hospitalization, Other)
  Sender: FDA-Public Use
  Company Number: ES-Y-mAbs Therapeutics A/S-2020-ES-100094

PATIENT
  Age: 3 Year
  Sex: Male
  Weight: 15 kg

DRUGS (14)
  1. IRINOTECAN [Suspect]
     Active Substance: IRINOTECAN
     Indication: Product used for unknown indication
     Dosage: UNK
     Route: 065
     Dates: start: 20200224
  2. GRANULOCYTE-MACROPHAGE COLONY-STIMULATING FACTOR [Suspect]
     Active Substance: GRANULOCYTE-MACROPHAGE COLONY-STIMULATING FACTOR
     Indication: Neuroblastoma
     Dosage: 250 UNK(DAILY DOSE(S): 250 MICROGRAM/SQ. METER, CYCLE 1 DOSE 1)
     Route: 042
     Dates: start: 20191013
  3. GRANULOCYTE-MACROPHAGE COLONY-STIMULATING FACTOR [Suspect]
     Active Substance: GRANULOCYTE-MACROPHAGE COLONY-STIMULATING FACTOR
     Dosage: 250 UNK(DAILY DOSE(S): 250 MICROGRAM/SQ. METER,CYCLE 6 DOSE 5)
     Route: 042
     Dates: start: 20200304, end: 20200304
  4. NAXITAMAB [Suspect]
     Active Substance: NAXITAMAB
     Indication: Neuroblastoma
     Dosage: 2.25 MILLIGRAM/KILOGRAM(DAILY DOSE(S): 2.25 MILLIGRAM/KILOGRAM, CYCLE 3)
     Route: 042
     Dates: start: 20191204
  5. NAXITAMAB [Suspect]
     Active Substance: NAXITAMAB
     Dosage: 2.25 MILLIGRAM/KILOGRAM(DAILY DOSE(S): 2.25 MILLIGRAM/KILOGRAM, CYCLE 4)
     Route: 042
     Dates: start: 20200101, end: 20200101
  6. NAXITAMAB [Suspect]
     Active Substance: NAXITAMAB
     Dosage: 2.25 MILLIGRAM/KILOGRAM(DAILY DOSE(S): 2.25 MILLIGRAM/KILOGRAM,CYCLE 1 DOSE 1)
     Route: 042
     Dates: start: 20201008, end: 20201008
  7. NAXITAMAB [Suspect]
     Active Substance: NAXITAMAB
     Dosage: 2.25 MILLIGRAM/KILOGRAM (DAILY DOSE(S): 2.25 MILLIGRAM/KILOGRAM, CYCLE 6,DOSE1
     Route: 042
     Dates: start: 20200225, end: 20200225
  8. NAXITAMAB [Suspect]
     Active Substance: NAXITAMAB
     Dosage: 2.25 MILLIGRAM/KILOGRAM(DAILY DOSE(S): 2.25 MILLIGRAM/KILOGRAM, CYCLE 6,DOSE 4
     Route: 042
     Dates: start: 20200304, end: 20200304
  9. NAXITAMAB [Suspect]
     Active Substance: NAXITAMAB
     Dosage: 2.25 MILLIGRAM/KILOGRAM(DAILY DOSE(S): 2.25 MILLIGRAM/KILOGRAM, CYCLE 6,DOSE 2)
     Route: 042
     Dates: start: 20200227, end: 20200227
  10. NAXITAMAB [Suspect]
     Active Substance: NAXITAMAB
     Dosage: 2.25 MILLIGRAM/KILOGRAM(DAILY DOSE(S): 2.25 MILLIGRAM/KILOGRAM, CYCLE 2)
     Route: 042
     Dates: start: 20191104, end: 20191104
  11. NAXITAMAB [Suspect]
     Active Substance: NAXITAMAB
     Dosage: 2.25 MILLIGRAM/KILOGRAM(DAILY DOSE(S): 2.25 MILLIGRAM/KILOGRAM, CYCLE 5)
     Route: 042
     Dates: start: 20200127, end: 20200127
  12. NAXITAMAB [Suspect]
     Active Substance: NAXITAMAB
     Dosage: 2.25 MILLIGRAM/KILOGRAM(DAILY DOSE(S): 2.25 MILLIGRAM/KILOGRAM, CYCLE 5)
     Route: 042
     Dates: start: 20200331, end: 20200331
  13. NAXITAMAB [Suspect]
     Active Substance: NAXITAMAB
     Dosage: 2.25 MILLIGRAM/KILOGRAM(DAILY DOSE(S): 2.25 MILLIGRAM/KILOGRAM, CYCLE 5)
     Route: 042
     Dates: start: 20200302, end: 20200302
  14. CEFTRIAXONE [Concomitant]
     Active Substance: CEFTRIAXONE
     Indication: Product used for unknown indication
     Dosage: UNK
     Route: 065
     Dates: start: 20200306

REACTIONS (1)
  - Serum sickness-like reaction [Recovered/Resolved]

NARRATIVE: CASE EVENT DATE: 20200306
